FAERS Safety Report 7921380-6 (Version None)
Quarter: 2011Q4

REPORT INFORMATION
  Report Type: 
  Country: None (occurrence: None)
  Receive Date: 20111117
  Receipt Date: 20111108
  Transmission Date: 20120403
  Serious: Yes (Other)
  Sender: FDA-Public Use
  Company Number: BR-ASTRAZENECA-2011SE66408

PATIENT
  Age: 55 Year
  Sex: Male

DRUGS (1)
  1. ATACAND HCT [Suspect]
     Indication: HYPERTENSION
     Dosage: 16/12.5 MG
     Route: 048
     Dates: start: 20070101

REACTIONS (3)
  - HYPERSENSITIVITY [None]
  - PLATELET COUNT DECREASED [None]
  - OROPHARYNGEAL CANCER STAGE UNSPECIFIED [None]
